FAERS Safety Report 12277133 (Version 2)
Quarter: 2017Q4

REPORT INFORMATION
  Report Type: Report from Study
  Country: CA (occurrence: CA)
  Receive Date: 20160418
  Receipt Date: 20171219
  Transmission Date: 20180320
  Serious: Yes (Other)
  Sender: FDA-Public Use
  Company Number: CA-ROCHE-1544666

PATIENT
  Age: 58 Year
  Sex: Male
  Weight: 102.15 kg

DRUGS (12)
  1. METHOTREXATE. [Concomitant]
     Active Substance: METHOTREXATE
  2. RITUXAN [Suspect]
     Active Substance: RITUXIMAB
     Indication: RHEUMATOID ARTHRITIS
     Dosage: ON 25/MAY/2017, HE RECEIVED HIS PREVIOUS RITUXIMAB DOSE.
     Route: 042
     Dates: start: 20120308
  3. METHYLPREDNISOLONE. [Concomitant]
     Active Substance: METHYLPREDNISOLONE
     Indication: PREMEDICATION
     Route: 042
     Dates: start: 20120308
  4. METFORMIN [Concomitant]
     Active Substance: METFORMIN HYDROCHLORIDE
  5. VENTOLIN [Concomitant]
     Active Substance: ALBUTEROL SULFATE
  6. NEXIUM [Concomitant]
     Active Substance: ESOMEPRAZOLE MAGNESIUM
  7. ALTACE [Concomitant]
     Active Substance: RAMIPRIL
  8. DIPHENHYDRAMINE HCL [Concomitant]
     Active Substance: DIPHENHYDRAMINE HYDROCHLORIDE
     Indication: PREMEDICATION
     Route: 048
     Dates: start: 20120308
  9. GLYBURIDE. [Concomitant]
     Active Substance: GLYBURIDE
  10. HUMULIN N [Concomitant]
     Active Substance: INSULIN HUMAN
  11. ADVAIR HFA [Concomitant]
     Active Substance: FLUTICASONE PROPIONATE\SALMETEROL XINAFOATE
  12. ACETAMINOPHEN. [Concomitant]
     Active Substance: ACETAMINOPHEN
     Indication: PREMEDICATION
     Route: 048
     Dates: start: 20120308

REACTIONS (19)
  - Carpal tunnel syndrome [Not Recovered/Not Resolved]
  - Infusion related reaction [Unknown]
  - Oxygen saturation decreased [Unknown]
  - Blood pressure increased [Unknown]
  - Abdominal pain [Unknown]
  - Wound haemorrhage [Unknown]
  - Investigation abnormal [Unknown]
  - Diarrhoea [Unknown]
  - Weight decreased [Unknown]
  - Tremor [Recovered/Resolved]
  - Red blood cell sedimentation rate abnormal [Unknown]
  - Ill-defined disorder [Unknown]
  - Rheumatoid arthritis [Not Recovered/Not Resolved]
  - Injection site pruritus [Recovering/Resolving]
  - Trigger finger [Not Recovered/Not Resolved]
  - Renal cancer [Unknown]
  - Blood glucose increased [Recovered/Resolved]
  - Injection site erythema [Recovering/Resolving]
  - Heart rate increased [Unknown]

NARRATIVE: CASE EVENT DATE: 2014
